FAERS Safety Report 21550012 (Version 2)
Quarter: 2022Q4

REPORT INFORMATION
  Report Type: Spontaneous
  Country: CA (occurrence: None)
  Receive Date: 20221103
  Receipt Date: 20221104
  Transmission Date: 20230113
  Serious: Yes (Other)
  Sender: FDA-Public Use
  Company Number: 2022A346283

PATIENT
  Age: 71 Year
  Sex: Male

DRUGS (7)
  1. DAPAGLIFLOZIN [Suspect]
     Active Substance: DAPAGLIFLOZIN
     Indication: Blood glucose increased
     Route: 048
  2. METFORMIN [Concomitant]
     Active Substance: METFORMIN HYDROCHLORIDE
     Route: 065
  3. ASPIRIN [Concomitant]
     Active Substance: ASPIRIN
     Route: 065
  4. FOSINOPRIL [Concomitant]
     Active Substance: FOSINOPRIL
     Route: 065
  5. DULOXETINE [Concomitant]
     Active Substance: DULOXETINE
     Route: 065
  6. ROSUVASTATIN [Concomitant]
     Active Substance: ROSUVASTATIN
  7. INSULIN NOS [Concomitant]
     Active Substance: INSULIN NOS
     Dosage: 50 MG, EVENING
     Route: 065

REACTIONS (11)
  - Rhinorrhoea [Not Recovered/Not Resolved]
  - Parosmia [Not Recovered/Not Resolved]
  - Thirst [Not Recovered/Not Resolved]
  - Pollakiuria [Not Recovered/Not Resolved]
  - Rash [Not Recovered/Not Resolved]
  - Rash pruritic [Not Recovered/Not Resolved]
  - Herpes zoster [Unknown]
  - Rash macular [Unknown]
  - Blister [Unknown]
  - Paraesthesia [Not Recovered/Not Resolved]
  - Intentional dose omission [Unknown]

NARRATIVE: CASE EVENT DATE: 20220501
